FAERS Safety Report 9729825 (Version 1)
Quarter: 2013Q4

REPORT INFORMATION
  Report Type: Spontaneous
  Country: US (occurrence: US)
  Receive Date: 20131204
  Receipt Date: 20131204
  Transmission Date: 20140711
  Serious: No
  Sender: FDA-Public Use
  Company Number: US-TEVA-447401USA

PATIENT
  Age: 67 Year
  Sex: Female
  Weight: 72.64 kg

DRUGS (6)
  1. PROAIR HFA [Suspect]
     Indication: HYPERSENSITIVITY
  2. ARMOUR THYROID [Concomitant]
     Indication: HYPOTHYROIDISM
  3. VITAMIN D [Concomitant]
  4. PREMPRO [Concomitant]
     Indication: MENOPAUSE
  5. TYLENOL [Concomitant]
     Indication: PAIN
  6. MOTRIN [Concomitant]
     Indication: PAIN

REACTIONS (6)
  - Feeling abnormal [Recovered/Resolved]
  - Presyncope [Recovered/Resolved]
  - Nausea [Recovered/Resolved]
  - Chills [Recovered/Resolved]
  - Tremor [Recovered/Resolved]
  - Dysstasia [Recovered/Resolved]
